FAERS Safety Report 6868600-7 (Version None)
Quarter: 2010Q3

REPORT INFORMATION
  Report Type: 
  Country: None (occurrence: None)
  Receive Date: 20100722
  Receipt Date: 20080729
  Transmission Date: 20110219
  Serious: No
  Sender: FDA-Public Use
  Company Number: US-PFIZER INC-2008046970

PATIENT
  Sex: Male
  Weight: 70.31 kg

DRUGS (3)
  1. CHANTIX [Suspect]
     Indication: SMOKING CESSATION THERAPY
     Route: 048
     Dates: start: 20080531
  2. OTHER RESPIRATORY SYSTEM PRODUCTS [Concomitant]
  3. VIAGRA [Concomitant]

REACTIONS (2)
  - MALAISE [None]
  - TOBACCO USER [None]
